FAERS Safety Report 18479894 (Version 6)
Quarter: 2021Q4

REPORT INFORMATION
  Report Type: Report from Study
  Country: BR (occurrence: None)
  Receive Date: 20201109
  Receipt Date: 20211216
  Transmission Date: 20220303
  Serious: Yes (Other)
  Sender: FDA-Public Use
  Company Number: BR-MERCK HEALTHCARE KGAA-9193832

PATIENT
  Age: 48 Year
  Sex: Female

DRUGS (6)
  1. MAVENCLAD [Suspect]
     Active Substance: CLADRIBINE
     Indication: Multiple sclerosis
     Dosage: YEAR ONE MONTH ONE THERAPY: TWO TABLETS ON DAYS 1 TO 3 AND ONE TABLET ON DAYS 4 AND 5.
     Route: 048
     Dates: start: 20201019, end: 20201023
  2. MAVENCLAD [Suspect]
     Active Substance: CLADRIBINE
     Dosage: YEAR ONE MONTH TWO THERAPY: 2 TAB ON DAYS 1 TO 2 AND ONE TAB ON DAYS 3 TO 5
     Route: 048
     Dates: start: 20201118, end: 20201122
  3. MAVENCLAD [Suspect]
     Active Substance: CLADRIBINE
     Dosage: YEAR TWO MONTH ONE THERAPY
     Route: 048
     Dates: start: 20211018, end: 20211022
  4. MAVENCLAD [Suspect]
     Active Substance: CLADRIBINE
     Dosage: YEAR TWO MONTH TWO THERAPY
     Route: 048
     Dates: start: 20201117, end: 20201121
  5. DULOXETINE [Concomitant]
     Active Substance: DULOXETINE
     Indication: Stress
     Dosage: 20MG ONCE DAILY IN MORNING
  6. DULOXETINE [Concomitant]
     Active Substance: DULOXETINE
     Indication: Gait disturbance

REACTIONS (11)
  - Leukopenia [Not Recovered/Not Resolved]
  - Fungal infection [Recovered/Resolved]
  - Dyspnoea [Recovered/Resolved]
  - Discomfort [Recovered/Resolved]
  - Asthenia [Not Recovered/Not Resolved]
  - Muscular weakness [Not Recovered/Not Resolved]
  - Back pain [Not Recovered/Not Resolved]
  - Headache [Not Recovered/Not Resolved]
  - Fatigue [Not Recovered/Not Resolved]
  - Alopecia [Not Recovered/Not Resolved]
  - Toothache [Not Recovered/Not Resolved]

NARRATIVE: CASE EVENT DATE: 20201019
